FAERS Safety Report 8328888-2 (Version None)
Quarter: 2012Q2

REPORT INFORMATION
  Report Type: 
  Country: None (occurrence: None)
  Receive Date: 20120502
  Receipt Date: 20120430
  Transmission Date: 20120825
  Serious: Yes (Death, Hospitalization)
  Sender: FDA-Public Use
  Company Number: PHHY2012MX029918

PATIENT
  Sex: Male

DRUGS (3)
  1. HYDROCHLOROTHIAZIDE [Concomitant]
  2. EXFORGE HCT [Suspect]
     Indication: HYPERTENSION
     Dosage: 2 DF (160 MG VALS, 5 MG AMLO AND 12.5 MG HYDRO),  DAILY
     Dates: start: 20090301, end: 20120328
  3. MELITRON [Concomitant]
     Dosage: 3 DF, DAILY

REACTIONS (2)
  - BLOOD PRESSURE DECREASED [None]
  - RENAL FAILURE [None]
